FAERS Safety Report 24722709 (Version 1)
Quarter: 2024Q4

REPORT INFORMATION
  Report Type: Spontaneous
  Country: US (occurrence: US)
  Receive Date: 20241211
  Receipt Date: 20241211
  Transmission Date: 20250115
  Serious: No
  Sender: DR REDDYS
  Company Number: US-DRL-USA-LIT/USA/24/0017886

PATIENT
  Sex: Male

DRUGS (3)
  1. DOXORUBICIN [Suspect]
     Active Substance: DOXORUBICIN
     Indication: Germ cell cancer
     Dosage: 30 MG/M2 OVER 15 MINUTES
     Route: 042
  2. CISPLATIN [Suspect]
     Active Substance: CISPLATIN
     Indication: Germ cell cancer
     Dosage: 30 MG/M2 OVER 2 HOURS
     Route: 042
  3. PACLITAXEL [Suspect]
     Active Substance: PACLITAXEL
     Indication: Germ cell cancer
     Dosage: 100 MG/M2 OVER 1 HOUR
     Route: 042

REACTIONS (1)
  - Product use in unapproved indication [Unknown]
